FAERS Safety Report 11352099 (Version 1)
Quarter: 2015Q3

REPORT INFORMATION
  Report Type: Spontaneous
  Country: US (occurrence: US)
  Receive Date: 20150807
  Receipt Date: 20150807
  Transmission Date: 20151125
  Serious: No
  Sender: FDA-Public Use
  Company Number: US-JNJFOC-20150116052

PATIENT
  Age: 63 Year
  Sex: Female
  Weight: 77.11 kg

DRUGS (10)
  1. WOMENS ROGAINE [Suspect]
     Active Substance: MINOXIDIL
     Route: 061
  2. WOMENS ROGAINE [Suspect]
     Active Substance: MINOXIDIL
     Indication: ALOPECIA
     Route: 061
  3. MULTIVITAMINS [Concomitant]
     Active Substance: VITAMINS
     Indication: ROUTINE HEALTH MAINTENANCE
     Dosage: 1 YEAR
     Route: 065
  4. MAGNESIUM [Concomitant]
     Active Substance: MAGNESIUM
     Indication: ROUTINE HEALTH MAINTENANCE
     Dosage: 1 YEAR
     Route: 065
  5. VITAMIN B6 [Concomitant]
     Active Substance: PYRIDOXINE HYDROCHLORIDE
     Indication: ROUTINE HEALTH MAINTENANCE
     Dosage: 1 YEAR
     Route: 065
  6. CHLORELLA VULGARIS [Concomitant]
     Active Substance: CHLORELLA VULGARIS
     Indication: ROUTINE HEALTH MAINTENANCE
     Dosage: 1 YEAR
     Route: 065
  7. BIOTIN [Concomitant]
     Active Substance: BIOTIN
     Indication: ROUTINE HEALTH MAINTENANCE
     Dosage: 1 YEAR
     Route: 065
  8. HERBAL MEDICATION [Concomitant]
     Active Substance: HERBALS
     Indication: ROUTINE HEALTH MAINTENANCE
     Dosage: 1 YEAR
     Route: 065
  9. VITAMIN B12 [Concomitant]
     Active Substance: CYANOCOBALAMIN
     Indication: ROUTINE HEALTH MAINTENANCE
     Dosage: 1 YEAR
     Route: 065
  10. KRILL OIL [Concomitant]
     Active Substance: DIETARY SUPPLEMENT
     Indication: ROUTINE HEALTH MAINTENANCE
     Dosage: 1 YEAR
     Route: 065

REACTIONS (3)
  - Wrong technique in product usage process [Unknown]
  - Hair growth abnormal [Not Recovered/Not Resolved]
  - Alopecia [Not Recovered/Not Resolved]
